FAERS Safety Report 4355883-0 (Version None)
Quarter: 2004Q2

REPORT INFORMATION
  Report Type: 
  Country: None (occurrence: None)
  Receive Date: 20040505
  Receipt Date: 20040422
  Transmission Date: 20050107
  Serious: Yes (Death)
  Sender: FDA-Public Use
  Company Number: JP-JNJFOC-20040204710

PATIENT
  Age: 60 Year
  Sex: Female
  Weight: 69 kg

DRUGS (12)
  1. REMICADE [Suspect]
     Indication: RHEUMATOID ARTHRITIS
     Dosage: SEE IMAGE
     Route: 041
     Dates: start: 20031105, end: 20031105
  2. REMICADE [Suspect]
     Indication: RHEUMATOID ARTHRITIS
     Dosage: SEE IMAGE
     Route: 041
     Dates: start: 20031119, end: 20031119
  3. RHEUMATREX [Suspect]
     Indication: RHEUMATOID ARTHRITIS
     Dosage: SEE IMAGE
     Route: 048
     Dates: start: 20020101, end: 20020526
  4. RHEUMATREX [Suspect]
     Indication: RHEUMATOID ARTHRITIS
     Dosage: SEE IMAGE
     Route: 048
     Dates: start: 20020527, end: 20030202
  5. RHEUMATREX [Suspect]
     Indication: RHEUMATOID ARTHRITIS
     Dosage: SEE IMAGE
     Route: 048
     Dates: start: 20030203, end: 20030803
  6. RHEUMATREX [Suspect]
     Indication: RHEUMATOID ARTHRITIS
     Dosage: SEE IMAGE
     Route: 048
     Dates: start: 20030804, end: 20031217
  7. PREDNISOLONE [Concomitant]
  8. AZULFIDINE EN (SULFASALAZINE) UNKNOWN [Concomitant]
  9. VOLTAREN [Concomitant]
  10. ULCERLMIN (SUCRALFATE) LIQUID [Concomitant]
  11. GEFANIL (GEFARNATE) UNKNOWN [Concomitant]
  12. NORVASC (AMLODIPINE BESILATE) UNKNOWN [Concomitant]

REACTIONS (4)
  - DRUG INTERACTION [None]
  - INCREASED UPPER AIRWAY SECRETION [None]
  - INTERSTITIAL LUNG DISEASE [None]
  - THROAT IRRITATION [None]
